FAERS Safety Report 4500163-3 (Version None)
Quarter: 2004Q4

REPORT INFORMATION
  Report Type: 
  Country: None (occurrence: None)
  Receive Date: 20041112
  Receipt Date: 20041105
  Transmission Date: 20050328
  Serious: Yes (Hospitalization)
  Sender: FDA-Public Use
  Company Number: PHBS2004GR14917

PATIENT
  Age: 33 Year
  Sex: Female

DRUGS (4)
  1. ZOLEDRONIC ACID [Suspect]
     Indication: BREAST CANCER METASTATIC
     Route: 042
  2. TAMOXIFEN CITRATE [Concomitant]
     Dosage: 20 MG/D
     Route: 048
  3. 5-FU + EPIRUBICIN + CYCLOPHOSPHAMIDE [Concomitant]
     Dosage: 5 CYCLES
  4. RADIOTHERAPY [Concomitant]
     Dosage: 28 GY (8 FRACTIONS)

REACTIONS (4)
  - CAESAREAN SECTION [None]
  - DRUG EXPOSURE DURING PREGNANCY [None]
  - NORMAL NEWBORN [None]
  - PREMATURE BABY [None]
